FAERS Safety Report 8081069-2 (Version None)
Quarter: 2012Q1

REPORT INFORMATION
  Report Type: 
  Country: None (occurrence: None)
  Receive Date: 20120130
  Receipt Date: 20120120
  Transmission Date: 20120608
  Serious: Yes (Other)
  Sender: FDA-Public Use
  Company Number: US-PURDUE-USA-2012-0080911

PATIENT
  Sex: Female

DRUGS (2)
  1. BUTRANS [Suspect]
     Indication: ANALGESIC THERAPY
     Dosage: 10 MCG, Q1H
     Route: 062
  2. BUTRANS [Suspect]
     Dosage: 15 MCG, Q1H
     Route: 062

REACTIONS (3)
  - INADEQUATE ANALGESIA [None]
  - PANCREATITIS [None]
  - INCORRECT DOSE ADMINISTERED [None]
